FAERS Safety Report 21462660 (Version 2)
Quarter: 2022Q4

REPORT INFORMATION
  Report Type: Other
  Country: US (occurrence: None)
  Receive Date: 20221017
  Receipt Date: 20221227
  Transmission Date: 20230112
  Serious: Yes (Other)
  Sender: FDA-Public Use
  Company Number: US-ROCHE-3158314

PATIENT
  Age: 53 Year
  Sex: Male

DRUGS (6)
  1. XELODA [Suspect]
     Active Substance: CAPECITABINE
     Indication: Oropharyngeal cancer
     Dosage: TAKE A 2 TAB IN 1 DAY ALTERNATING 3 TAB BY DAY ONCE WEEK OFF,
     Route: 048
     Dates: start: 20220727
  2. XELODA [Suspect]
     Active Substance: CAPECITABINE
     Indication: Lymphoma
     Dosage: TAKE 2 TABLET(S) BY MOUTH TWICE A DAY ALTERNATING WITH TAKE 3?TABLET(S) BY MOUTH TWICE A DAY EVERY O
     Route: 048
  3. DEXAMETHASONE [Concomitant]
     Active Substance: DEXAMETHASONE
  4. OXYCODONE HYDROCHLORIDE [Concomitant]
     Active Substance: OXYCODONE HYDROCHLORIDE
  5. PROCHLORPERAZINE MALEATE [Concomitant]
     Active Substance: PROCHLORPERAZINE MALEATE
  6. FLUTICASONE PROPIONATE [Concomitant]
     Active Substance: FLUTICASONE PROPIONATE

REACTIONS (4)
  - Off label use [Unknown]
  - Neoplasm progression [Unknown]
  - Deafness [Unknown]
  - Malaise [Unknown]
